FAERS Safety Report 17835403 (Version 3)
Quarter: 2020Q4

REPORT INFORMATION
  Report Type: Spontaneous
  Country: SI (occurrence: SI)
  Receive Date: 20200528
  Receipt Date: 20201124
  Transmission Date: 20210113
  Serious: Yes (Other)
  Sender: FDA-Public Use
  Company Number: SI-BAYER-2020-091454

PATIENT
  Sex: Male

DRUGS (3)
  1. STIVARGA [Suspect]
     Active Substance: REGORAFENIB
     Dosage: 80 MG, QD
  2. NEXAVAR [Suspect]
     Active Substance: SORAFENIB
     Indication: HEPATOCELLULAR CARCINOMA
     Dosage: 800 MG, QD
     Route: 048
     Dates: start: 201401
  3. NEXAVAR [Suspect]
     Active Substance: SORAFENIB
     Indication: HEPATOCELLULAR CARCINOMA
     Dosage: 400 UNK
     Dates: end: 201810

REACTIONS (12)
  - Off label use [None]
  - Alpha 1 foetoprotein increased [None]
  - Blood bilirubin increased [None]
  - Platelet count increased [None]
  - Hepatocellular carcinoma [None]
  - Hepatic cirrhosis [None]
  - Carbohydrate antigen 19-9 increased [None]
  - Hepatic enzyme decreased [None]
  - Oral pain [None]
  - Palmar-plantar erythrodysaesthesia syndrome [None]
  - Metastasis [None]
  - Arthralgia [None]
